FAERS Safety Report 24204552 (Version 1)
Quarter: 2024Q3

REPORT INFORMATION
  Report Type: Spontaneous
  Country: AU (occurrence: AU)
  Receive Date: 20240813
  Receipt Date: 20240813
  Transmission Date: 20241016
  Serious: Yes (Other)
  Sender: ASCEND
  Company Number: AU-Ascend Therapeutics US, LLC-2160312

PATIENT
  Age: 25 Year
  Sex: Female

DRUGS (2)
  1. ANDROGEL [Suspect]
     Active Substance: TESTOSTERONE
     Indication: Product used for unknown indication
     Route: 065
  2. TESTOSTERONE [Suspect]
     Active Substance: TESTOSTERONE
     Route: 065

REACTIONS (4)
  - Bipolar disorder [Unknown]
  - Product use issue [Unknown]
  - Psychotic disorder [Unknown]
  - Mania [Unknown]
